FAERS Safety Report 7675635-3 (Version None)
Quarter: 2011Q3

REPORT INFORMATION
  Report Type: 
  Country: None (occurrence: None)
  Receive Date: 20110810
  Receipt Date: 20110809
  Transmission Date: 20111222
  Serious: Yes (Other)
  Sender: FDA-Public Use
  Company Number: DZ-PFIZER INC-2011171232

PATIENT
  Age: 79 Year
  Sex: Male

DRUGS (7)
  1. PLAVIX [Concomitant]
     Dosage: 75 MG, 1X/DAY
  2. ACETAMINOPHEN [Concomitant]
     Indication: DIABETIC NEUROPATHY
     Dosage: UNK
  3. INSULIN [Concomitant]
     Dosage: 3 DF, UNK
  4. LYRICA [Concomitant]
     Indication: DIABETIC NEUROPATHY
     Dosage: 300 MG, 1X/DAY
  5. IRBESARTAN AND HYDROCHLOROTHIAZIDE [Concomitant]
     Dosage: 300 MG, 1X/DAY
  6. ATORVASTATIN CALCIUM [Suspect]
     Indication: CORONARY ARTERY DISEASE
     Dosage: 80 MG, 1X/DAY
     Route: 048
  7. ASPEGIC 325 [Concomitant]
     Dosage: 100 MG, 1X/DAY

REACTIONS (2)
  - ALANINE AMINOTRANSFERASE ABNORMAL [None]
  - HEPATIC ENZYME INCREASED [None]
